FAERS Safety Report 8802857 (Version 2)
Quarter: 2015Q2

REPORT INFORMATION
  Report Type: Report from Study
  Country: US (occurrence: US)
  Receive Date: 20120921
  Receipt Date: 20150623
  Transmission Date: 20150821
  Serious: Yes (Death)
  Sender: FDA-Public Use
  Company Number: US-ROCHE-1125883

PATIENT
  Age: 81 Year
  Sex: Male

DRUGS (12)
  1. AVASTIN [Suspect]
     Active Substance: BEVACIZUMAB
     Route: 065
  2. TYLENOL [Concomitant]
     Active Substance: ACETAMINOPHEN
     Route: 048
  3. INTRON A [Concomitant]
     Active Substance: INTERFERON ALFA-2B
     Route: 065
  4. AVASTIN [Suspect]
     Active Substance: BEVACIZUMAB
     Route: 065
  5. AVASTIN [Suspect]
     Active Substance: BEVACIZUMAB
     Indication: RENAL CANCER
     Route: 065
     Dates: start: 20050523
  6. SENOKOT [Concomitant]
     Active Substance: SENNOSIDES
  7. INDOCIN [Concomitant]
     Active Substance: INDOMETHACIN\INDOMETHACIN SODIUM
     Route: 065
  8. PROCRIT [Concomitant]
     Active Substance: ERYTHROPOIETIN
     Route: 058
  9. TARCEVA [Concomitant]
     Active Substance: ERLOTINIB HYDROCHLORIDE
     Route: 065
  10. BENADRYL [Concomitant]
     Active Substance: DIPHENHYDRAMINE HYDROCHLORIDE
     Route: 048
  11. INTERLEUKIN-2 [Concomitant]
     Active Substance: ALDESLEUKIN
     Route: 065
  12. HEPARIN [Concomitant]
     Active Substance: HEPARIN SODIUM
     Dosage: 500 CC
     Route: 065

REACTIONS (11)
  - Chest pain [Unknown]
  - Dyspnoea [Unknown]
  - Mental status changes [Unknown]
  - Death [Fatal]
  - Dysphonia [Unknown]
  - Genital rash [Unknown]
  - Constipation [Unknown]
  - Off label use [Unknown]
  - Weight decreased [Unknown]
  - Decreased appetite [Unknown]
  - Obstructive airways disorder [Unknown]

NARRATIVE: CASE EVENT DATE: 20050911
